FAERS Safety Report 15128478 (Version 1)
Quarter: 2018Q3

REPORT INFORMATION
  Report Type: Spontaneous
  Country: PL (occurrence: PL)
  Receive Date: 20180711
  Receipt Date: 20180711
  Transmission Date: 20181010
  Serious: Yes (Hospitalization)
  Sender: FDA-Public Use
  Company Number: PL-009507513-1807POL001798

PATIENT
  Age: 64 Year
  Sex: Male

DRUGS (15)
  1. RIBAVIRIN. [Suspect]
     Active Substance: RIBAVIRIN
     Dosage: UNK
     Route: 048
     Dates: start: 20151120, end: 20151129
  2. BISORATIO [Concomitant]
     Indication: PRODUCT USED FOR UNKNOWN INDICATION
  3. WARFARIN [Concomitant]
     Active Substance: WARFARIN
     Indication: PRODUCT USED FOR UNKNOWN INDICATION
     Dosage: 6 MG + 3 X 1.3MG
  4. EBIVOL [Concomitant]
     Indication: PRODUCT USED FOR UNKNOWN INDICATION
  5. WARFARIN [Concomitant]
     Active Substance: WARFARIN
     Dosage: 6 MG DAILY
  6. RIBAVIRIN. [Suspect]
     Active Substance: RIBAVIRIN
     Dosage: 400 MG, QD
     Route: 048
     Dates: start: 201512, end: 201601
  7. RIBAVIRIN. [Suspect]
     Active Substance: RIBAVIRIN
     Dosage: UNK
     Route: 048
     Dates: start: 20151130, end: 201512
  8. RIBAVIRIN. [Suspect]
     Active Substance: RIBAVIRIN
     Dosage: 800 MG, QD
     Route: 048
  9. EXVIERA [Suspect]
     Active Substance: DASABUVIR
     Indication: HEPATITIS C
     Route: 048
     Dates: start: 20151120, end: 20160414
  10. WARFARIN [Concomitant]
     Active Substance: WARFARIN
     Dosage: 6 MG A DAY AND ADDITIONALLY EVERY OTHER DAY 1.5 MG
  11. NOLPAZA [Concomitant]
     Active Substance: PANTOPRAZOLE SODIUM
     Indication: PRODUCT USED FOR UNKNOWN INDICATION
  12. WARFARIN [Concomitant]
     Active Substance: WARFARIN
     Dosage: SCHEME: 3 MG AND 4.5 MG EVERY OTHER DAY
  13. RIBAVIRIN. [Suspect]
     Active Substance: RIBAVIRIN
     Indication: HEPATITIS C
     Dosage: UNK
     Route: 048
     Dates: start: 201601, end: 20160414
  14. VIEKIRAX [Suspect]
     Active Substance: OMBITASVIR\PARITAPREVIR\RITONAVIR
     Indication: HEPATITIS C
     Route: 048
     Dates: start: 20151120, end: 20160414
  15. WARFARIN [Concomitant]
     Active Substance: WARFARIN
     Dosage: SCHEME: 3 MG/DAY DURING TWO DAYS, 1.5 MG/DAY

REACTIONS (17)
  - Biliary colic [Unknown]
  - Tendon pain [Unknown]
  - Ascites [Recovered/Resolved]
  - Abdominal pain [Recovering/Resolving]
  - Renal failure [Recovered/Resolved]
  - Cholangitis [Recovered/Resolved]
  - Asthenia [Not Recovered/Not Resolved]
  - Alanine aminotransferase increased [Recovered/Resolved]
  - Leukocytosis [Unknown]
  - Hypoalbuminaemia [Recovering/Resolving]
  - White blood cell count abnormal [Unknown]
  - C-reactive protein increased [Unknown]
  - International normalised ratio abnormal [Unknown]
  - Bile duct stone [Recovered/Resolved]
  - Procalcitonin [Unknown]
  - Hepatic failure [Recovered/Resolved]
  - Blood bilirubin increased [Recovered/Resolved]

NARRATIVE: CASE EVENT DATE: 20160420
